FAERS Safety Report 11240697 (Version 1)
Quarter: 2015Q3

REPORT INFORMATION
  Report Type: Spontaneous
  Country: US (occurrence: US)
  Receive Date: 20150706
  Receipt Date: 20150706
  Transmission Date: 20151125
  Serious: Yes (Hospitalization)
  Sender: FDA-Public Use
  Company Number: PHHY2015US077725

PATIENT
  Age: 57 Year
  Sex: Male

DRUGS (2)
  1. AMIODARONE [Suspect]
     Active Substance: AMIODARONE
     Indication: ATRIAL FIBRILLATION
     Dosage: 400 MG, DAILY
  2. METOPROLOL [Concomitant]
     Active Substance: METOPROLOL
     Indication: ATRIAL FIBRILLATION

REACTIONS (10)
  - Lung disorder [Recovering/Resolving]
  - Chest pain [Recovering/Resolving]
  - Tachypnoea [Recovering/Resolving]
  - Respiratory failure [Recovering/Resolving]
  - Dyspnoea [Recovering/Resolving]
  - Pulmonary toxicity [Recovering/Resolving]
  - Hypoxia [Recovering/Resolving]
  - Atrioventricular block first degree [Recovering/Resolving]
  - Malaise [Recovering/Resolving]
  - Electrocardiogram QT prolonged [Recovering/Resolving]
